FAERS Safety Report 20674877 (Version 4)
Quarter: 2022Q3

REPORT INFORMATION
  Report Type: Spontaneous
  Country: JP (occurrence: JP)
  Receive Date: 20220405
  Receipt Date: 20220802
  Transmission Date: 20221027
  Serious: Yes (Death, Other)
  Sender: FDA-Public Use
  Company Number: JP-MSD-2203JPN003896J

PATIENT
  Sex: Female

DRUGS (1)
  1. LAGEVRIO [Suspect]
     Active Substance: MOLNUPIRAVIR
     Indication: COVID-19 treatment
     Dosage: 800 MILLIGRAM, BID
     Route: 048
     Dates: start: 20220129, end: 20220201

REACTIONS (4)
  - Pneumonia aspiration [Fatal]
  - COVID-19 pneumonia [Unknown]
  - Dysphagia [Unknown]
  - Immobilisation syndrome [Unknown]

NARRATIVE: CASE EVENT DATE: 20220101
